FAERS Safety Report 9523702 (Version 2)
Quarter: 2013Q4

REPORT INFORMATION
  Report Type: Report from Study
  Country: BR (occurrence: BR)
  Receive Date: 20130913
  Receipt Date: 20131025
  Transmission Date: 20140711
  Serious: Yes (Other)
  Sender: FDA-Public Use
  Company Number: BR-ROCHE-1270394

PATIENT
  Sex: Female
  Weight: 81 kg

DRUGS (5)
  1. RIBAVIRIN [Suspect]
     Indication: HEPATITIS C
     Route: 065
     Dates: start: 2009, end: 2010
  2. INTERFERON ALFA-2B [Suspect]
     Indication: HEPATITIS C
     Route: 065
     Dates: start: 2009, end: 2010
  3. DIPYRONE [Concomitant]
  4. SERTRALINE [Concomitant]
     Indication: DEPRESSION
     Dosage: IN THE EVENINGS
     Route: 065
  5. DALMADORM [Concomitant]
     Indication: INSOMNIA

REACTIONS (8)
  - Splenic lesion [Unknown]
  - Hepatic cirrhosis [Unknown]
  - Malaise [Unknown]
  - Pyrexia [Recovered/Resolved]
  - Muscular weakness [Not Recovered/Not Resolved]
  - Pain [Not Recovered/Not Resolved]
  - Gastric disorder [Unknown]
  - Hypothyroidism [Unknown]
